FAERS Safety Report 14764024 (Version 1)
Quarter: 2018Q2

REPORT INFORMATION
  Report Type: Spontaneous
  Country: US (occurrence: US)
  Receive Date: 20180410
  Receipt Date: 20180410
  Transmission Date: 20180711
  Serious: Yes (Death)
  Sender: FDA-Public Use
  Company Number: None

PATIENT
  Age: 22 Year
  Sex: Male
  Weight: 101.2 kg

DRUGS (6)
  1. METHOTREXATE. [Suspect]
     Active Substance: METHOTREXATE
     Dates: end: 20180326
  2. PREDNISONE. [Suspect]
     Active Substance: PREDNISONE
     Dates: end: 20180329
  3. ONCASPAR [Suspect]
     Active Substance: PEGASPARGASE
  4. DAUNORUBICIN [Suspect]
     Active Substance: DAUNORUBICIN
     Dates: end: 20180326
  5. CYTARABINE. [Suspect]
     Active Substance: CYTARABINE
  6. VINCRISTINE SULFATE. [Suspect]
     Active Substance: VINCRISTINE SULFATE
     Dates: end: 20180326

REACTIONS (13)
  - Mental status changes [None]
  - Blood lactic acid increased [None]
  - Enterococcus test positive [None]
  - Pyrexia [None]
  - Chills [None]
  - Confusional state [None]
  - Hyperammonaemia [None]
  - Cardio-respiratory arrest [None]
  - Thrombocytopenia [None]
  - Tachycardia [None]
  - Hepatic failure [None]
  - Klebsiella test positive [None]
  - Colitis [None]

NARRATIVE: CASE EVENT DATE: 20180329
